FAERS Safety Report 20481153 (Version 4)
Quarter: 2022Q1

REPORT INFORMATION
  Report Type: Report from Study
  Country: US (occurrence: US)
  Receive Date: 20220216
  Receipt Date: 20220321
  Transmission Date: 20220423
  Serious: No
  Sender: FDA-Public Use
  Company Number: US-NOVARTISTESTPH-NVSC2022US035729

PATIENT
  Sex: Female

DRUGS (2)
  1. ENTRESTO [Suspect]
     Active Substance: SACUBITRIL\VALSARTAN
     Indication: Cardiac failure chronic
     Dosage: 50 MG, BID (24/26)
     Route: 048
     Dates: start: 202108
  2. METOPROLOL [Suspect]
     Active Substance: METOPROLOL
     Indication: Product used for unknown indication
     Dosage: 37.5 MG (BED TIME)
     Route: 065
     Dates: start: 202108

REACTIONS (7)
  - Vertigo positional [Unknown]
  - Diarrhoea [Not Recovered/Not Resolved]
  - Dizziness postural [Unknown]
  - Hypotension [Unknown]
  - Inappropriate schedule of product administration [Unknown]
  - Seasonal allergy [Unknown]
  - Rash macular [Unknown]
